FAERS Safety Report 5304671-7 (Version None)
Quarter: 2007Q2

REPORT INFORMATION
  Report Type: 
  Country: None (occurrence: None)
  Receive Date: 20070416
  Receipt Date: 20070402
  Transmission Date: 20071010
  Serious: Yes (Other)
  Sender: FDA-Public Use
  Company Number: L07-BRA-01455-01

PATIENT
  Age: 35 Year
  Sex: Male

DRUGS (1)
  1. CARBAMAZEPINE [Suspect]
     Indication: EPILEPSY

REACTIONS (3)
  - BLOOD CHOLESTEROL INCREASED [None]
  - HIGH DENSITY LIPOPROTEIN DECREASED [None]
  - HYPERTRIGLYCERIDAEMIA [None]
